FAERS Safety Report 7080894-4 (Version None)
Quarter: 2010Q4

REPORT INFORMATION
  Report Type: 
  Country: None (occurrence: None)
  Receive Date: 20101103
  Receipt Date: 20101026
  Transmission Date: 20110411
  Serious: Yes (Hospitalization)
  Sender: FDA-Public Use
  Company Number: CO-WYE-H18391810

PATIENT
  Sex: Female

DRUGS (11)
  1. ENBREL [Suspect]
     Indication: RHEUMATOID ARTHRITIS
     Route: 058
     Dates: start: 20090101, end: 20101017
  2. GINKGO BILOBA [Concomitant]
     Indication: PAIN IN EXTREMITY
  3. GINKGO BILOBA [Concomitant]
     Indication: VARICOSE VEIN
  4. CALCIUM [Concomitant]
     Dosage: DOSE NOT PROVIDED
     Dates: start: 20020101
  5. ARALEN [Concomitant]
  6. ARAVA [Concomitant]
     Indication: RHEUMATOID ARTHRITIS
     Dates: start: 20070101
  7. ACETAMINOPHEN [Concomitant]
     Indication: ARTHRALGIA
     Dosage: 500 MG AS NEEDED
  8. LEVOTHYROXINE [Concomitant]
     Indication: HYPOTHYROIDISM
     Dates: start: 19840101
  9. OMEPRAZOLE [Concomitant]
     Dosage: DOSE NOT PROVIDED
  10. IBUPROFEN [Suspect]
     Indication: ARTHRALGIA
     Dosage: 500-1000 MG AS NEEDED
  11. CALCITRIOL [Concomitant]
     Dosage: DOSE NOT PROVIDED
     Dates: start: 20020101

REACTIONS (4)
  - BLOOD GLUCOSE INCREASED [None]
  - BLOOD PRESSURE INCREASED [None]
  - CHRONIC SINUSITIS [None]
  - CONDITION AGGRAVATED [None]
